FAERS Safety Report 8551871-9 (Version None)
Quarter: 2012Q3

REPORT INFORMATION
  Report Type: 
  Country: None (occurrence: None)
  Receive Date: 20120730
  Receipt Date: 20120723
  Transmission Date: 20120928
  Serious: Yes (Other)
  Sender: FDA-Public Use
  Company Number: CHPA2012US015727

PATIENT
  Age: 79 Year
  Sex: Female

DRUGS (9)
  1. DRUG THERAPY NOS [Concomitant]
     Indication: BLOOD PRESSURE
  2. VITAMINS NOS [Concomitant]
  3. VITAMIN B COMPLEX CAP [Concomitant]
  4. DRUG THERAPY NOS [Concomitant]
     Indication: DIABETES MELLITUS
  5. DRUG THERAPY NOS [Concomitant]
     Indication: BLOOD CHOLESTEROL
  6. DRUG THERAPY NOS [Concomitant]
  7. IRON [Concomitant]
  8. VOLTAREN [Suspect]
     Indication: OSTEOARTHRITIS
     Dosage: VARIES
     Route: 061
  9. DRUG THERAPY NOS [Concomitant]

REACTIONS (5)
  - ARTHRITIS [None]
  - ARTHROPATHY [None]
  - DRUG ADMINISTERED AT INAPPROPRIATE SITE [None]
  - PAIN [None]
  - UNDERDOSE [None]
